FAERS Safety Report 4453433-1 (Version None)
Quarter: 2004Q3

REPORT INFORMATION
  Report Type: 
  Country: None (occurrence: None)
  Receive Date: 20040920
  Receipt Date: 20040902
  Transmission Date: 20050211
  Serious: Yes (Death, Other)
  Sender: FDA-Public Use
  Company Number: JP-JNJFOC-20040800385

PATIENT
  Sex: Male

DRUGS (7)
  1. FENTANYL [Suspect]
     Route: 062
  2. FENTANYL [Suspect]
     Indication: CANCER PAIN
     Route: 062
  3. NAPROXEN [Concomitant]
     Indication: CANCER PAIN
     Route: 049
     Dates: start: 20040106, end: 20040807
  4. MOSAPRIDE CITRATE [Concomitant]
     Indication: CONSTIPATION
     Route: 049
  5. RABEPRAZOLE SODIUM [Concomitant]
     Indication: CANCER PAIN
     Route: 049
     Dates: start: 20040109, end: 20040807
  6. SENNOSIDE [Concomitant]
     Indication: CONSTIPATION
     Route: 049
     Dates: start: 20040109, end: 20040807
  7. BETAMETHASONE [Concomitant]
     Route: 049
     Dates: start: 20040302, end: 20040407

REACTIONS (6)
  - MALAISE [None]
  - MALIGNANT NEOPLASM PROGRESSION [None]
  - MUSCLE CONTRACTIONS INVOLUNTARY [None]
  - MYOCLONUS [None]
  - PNEUMONIA [None]
  - RENAL CELL CARCINOMA STAGE UNSPECIFIED [None]
